FAERS Safety Report 4948876-3 (Version None)
Quarter: 2006Q1

REPORT INFORMATION
  Report Type: 
  Country: None (occurrence: None)
  Receive Date: 20060316
  Receipt Date: 20060303
  Transmission Date: 20060701
  Serious: Yes (Hospitalization, Other)
  Sender: FDA-Public Use
  Company Number: HQWYE214308MAR06

PATIENT
  Age: 46 Year
  Sex: Female
  Weight: 75 kg

DRUGS (7)
  1. MYLOTARG [Suspect]
     Indication: ACUTE MYELOID LEUKAEMIA
     Dosage: 17 MG 1X PER 1 DAY, INTRAVENOUS
     Route: 042
     Dates: start: 20051221, end: 20051221
  2. KEPPRA [Concomitant]
  3. ADALAT CC [Concomitant]
  4. NEURONTIN [Concomitant]
  5. BACLOFEN [Concomitant]
  6. OXYCONTIN [Concomitant]
  7. OXYCODONE (OXYCODONE) [Concomitant]

REACTIONS (1)
  - PYREXIA [None]
